FAERS Safety Report 6562264-8 (Version None)
Quarter: 2010Q1

REPORT INFORMATION
  Report Type: 
  Country: None (occurrence: None)
  Receive Date: 20100130
  Receipt Date: 20091103
  Transmission Date: 20100710
  Serious: No
  Sender: FDA-Public Use
  Company Number: US-ABBOTT-09P-163-0606684-00

PATIENT
  Sex: Male
  Weight: 68.1 kg

DRUGS (3)
  1. HUMIRA [Suspect]
     Indication: CROHN'S DISEASE
     Dates: start: 20070101
  2. PENTASA [Concomitant]
     Indication: CROHN'S DISEASE
  3. CLONAZEPAM [Concomitant]
     Indication: INSOMNIA

REACTIONS (1)
  - COUGH [None]
